FAERS Safety Report 24091300 (Version 1)
Quarter: 2024Q3

REPORT INFORMATION
  Report Type: Spontaneous
  Country: CA (occurrence: CA)
  Receive Date: 20240715
  Receipt Date: 20240715
  Transmission Date: 20241017
  Serious: Yes (Hospitalization, Other)
  Sender: BRISTOL MYERS SQUIBB
  Company Number: CA-BRISTOL-MYERS SQUIBB COMPANY-2024-110590

PATIENT
  Age: 38 Year
  Sex: Female

DRUGS (4)
  1. PACLITAXEL [Suspect]
     Active Substance: PACLITAXEL
     Indication: Pancreatic carcinoma metastatic
     Route: 041
  2. DURVALUMAB [Concomitant]
     Active Substance: DURVALUMAB
     Indication: Pancreatic carcinoma metastatic
     Route: 042
  3. GEMCITABINE HYDROCHLORIDE [Concomitant]
     Active Substance: GEMCITABINE HYDROCHLORIDE
     Indication: Pancreatic carcinoma metastatic
     Route: 041
  4. TREMELIMUMAB [Concomitant]
     Active Substance: TREMELIMUMAB
     Indication: Pancreatic carcinoma metastatic
     Route: 041

REACTIONS (1)
  - Biliary tract infection [Not Recovered/Not Resolved]
